FAERS Safety Report 21284977 (Version 2)
Quarter: 2022Q3

REPORT INFORMATION
  Report Type: Spontaneous
  Country: US (occurrence: US)
  Receive Date: 20220902
  Receipt Date: 20220929
  Transmission Date: 20221027
  Serious: Yes (Death, Other)
  Sender: FDA-Public Use
  Company Number: US-BRISTOL-MYERS SQUIBB COMPANY-2022-097844

PATIENT
  Age: 79 Year
  Sex: Female

DRUGS (1)
  1. ELIQUIS [Suspect]
     Active Substance: APIXABAN
     Indication: Aortic aneurysm
     Route: 048
     Dates: start: 2018, end: 20220218

REACTIONS (2)
  - Lung neoplasm malignant [Fatal]
  - Pneumonia [Fatal]
